FAERS Safety Report 21500648 (Version 3)
Quarter: 2022Q4

REPORT INFORMATION
  Report Type: Spontaneous
  Country: US (occurrence: US)
  Receive Date: 20221025
  Receipt Date: 20221123
  Transmission Date: 20230112
  Serious: No
  Sender: FDA-Public Use
  Company Number: US-JNJFOC-20221022425

PATIENT
  Age: 38 Year
  Sex: Female
  Weight: 76.726 kg

DRUGS (1)
  1. PONVORY [Suspect]
     Active Substance: PONESIMOD
     Indication: Multiple sclerosis
     Route: 048
     Dates: start: 20220926, end: 20221009

REACTIONS (7)
  - Hypoaesthesia [Unknown]
  - Pain in extremity [Unknown]
  - Fatigue [Unknown]
  - Somnolence [Unknown]
  - Vertigo [Unknown]
  - Mobility decreased [Unknown]
  - Drug ineffective [Unknown]

NARRATIVE: CASE EVENT DATE: 20221003
